FAERS Safety Report 10032436 (Version 1)
Quarter: 2014Q1

REPORT INFORMATION
  Report Type: Spontaneous
  Country: AU (occurrence: None)
  Receive Date: 20140320
  Receipt Date: 20140320
  Transmission Date: 20141002
  Serious: Yes (Hospitalization)
  Sender: FDA-Public Use
  Company Number: 2014-AU-000010

PATIENT
  Age: 71 Year
  Sex: Female

DRUGS (2)
  1. ERYTHROMYCIN [Suspect]
     Route: 048
     Dates: start: 20131003, end: 20131010
  2. ATORVASTATIN [Suspect]

REACTIONS (2)
  - Myopathy [None]
  - Rhabdomyolysis [None]
